FAERS Safety Report 24371059 (Version 1)
Quarter: 2024Q3

REPORT INFORMATION
  Report Type: Spontaneous
  Country: US (occurrence: US)
  Receive Date: 20240927
  Receipt Date: 20240927
  Transmission Date: 20241017
  Serious: No
  Sender: ZYDUS PHARM
  Company Number: US-CADILA HEALTHCARE LIMITED-US-ZYDUS-108758

PATIENT

DRUGS (2)
  1. BOSENTAN [Suspect]
     Active Substance: BOSENTAN
     Indication: Pulmonary arterial hypertension
     Dosage: 32.5 MILLIGRAM
     Route: 048
  2. BOSENTAN [Suspect]
     Active Substance: BOSENTAN
     Indication: Off label use

REACTIONS (1)
  - Product use issue [Not Recovered/Not Resolved]
